FAERS Safety Report 13753684 (Version 2)
Quarter: 2017Q4

REPORT INFORMATION
  Report Type: Spontaneous
  Country: US (occurrence: US)
  Receive Date: 20170713
  Receipt Date: 20171027
  Transmission Date: 20180320
  Serious: Yes (Hospitalization)
  Sender: FDA-Public Use
  Company Number: US-VIFOR (INTERNATIONAL) INC.-VIT-2017-07547

PATIENT
  Age: 82 Year
  Sex: Female
  Weight: 66.6 kg

DRUGS (16)
  1. HYDRALAZINE HYDROCHLORIDE. [Concomitant]
     Active Substance: HYDRALAZINE HYDROCHLORIDE
  2. LOSARTAN POTASSIUM. [Concomitant]
     Active Substance: LOSARTAN POTASSIUM
  3. ACICLOVIR [Concomitant]
     Active Substance: ACYCLOVIR
  4. VELTASSA [Suspect]
     Active Substance: PATIROMER
     Indication: HYPERKALAEMIA
     Route: 048
     Dates: start: 20170517, end: 2017
  5. ACETYLSALICYLIC ACID [Concomitant]
     Active Substance: ASPIRIN
  6. CLONIDINE HYDROCHLORIDE. [Concomitant]
     Active Substance: CLONIDINE HYDROCHLORIDE
  7. GLYCEROL [Concomitant]
     Active Substance: GLYCERIN
  8. PROTONIX [Concomitant]
     Active Substance: PANTOPRAZOLE SODIUM
  9. VELTASSA [Suspect]
     Active Substance: PATIROMER
     Dates: start: 2017
  10. ISOSORBIDE MONONITRATE. [Concomitant]
     Active Substance: ISOSORBIDE MONONITRATE
  11. INSULIN [Concomitant]
     Active Substance: INSULIN NOS
  12. LEVOTHYROXINE SODIUM. [Concomitant]
     Active Substance: LEVOTHYROXINE SODIUM
  13. ADVAIR DISKUS [Concomitant]
     Active Substance: FLUTICASONE PROPIONATE\SALMETEROL XINAFOATE
  14. BISACODYL. [Concomitant]
     Active Substance: BISACODYL
  15. DIABETIC TUSSIN EX [Concomitant]
  16. GABAPENTIN. [Concomitant]
     Active Substance: GABAPENTIN

REACTIONS (9)
  - Hallucination [Unknown]
  - Frustration tolerance decreased [Unknown]
  - Lip swelling [Unknown]
  - Herpes zoster [Recovering/Resolving]
  - Anger [Unknown]
  - Abnormal behaviour [Unknown]
  - Rash pustular [Unknown]
  - Crying [Unknown]
  - Toxicity to various agents [Recovering/Resolving]

NARRATIVE: CASE EVENT DATE: 20170615
